FAERS Safety Report 11191652 (Version 1)
Quarter: 2015Q2

REPORT INFORMATION
  Report Type: Spontaneous
  Country: GB (occurrence: None)
  Receive Date: 20150612
  Receipt Date: 20150612
  Transmission Date: 20150821
  Serious: Yes (Hospitalization, Other)
  Sender: FDA-Public Use
  Company Number: FK201502670

PATIENT
  Age: 78 Year
  Sex: Male
  Weight: 120 kg

DRUGS (5)
  1. GLICLAZIDE [Concomitant]
     Active Substance: GLICLAZIDE
  2. HEPARIN LOW MOLECULAR WEIGHT UNSPECIFIED (HEPARIN) [Concomitant]
  3. GEMCITABINE (MANUFACTURER UNKNOWN) (GEMCITABINE) (GEMCITABINE) [Suspect]
     Active Substance: GEMCITABINE HYDROCHLORIDE
     Indication: PRODUCT USED FOR UNKNOWN INDICATION
     Dosage: 240 MG, CYCLICAL
     Route: 042
     Dates: start: 20150408
  4. CISPLATIN (MANUFACTURER UNKNOWN) (CISPLATIN) (CISPLATIN) [Suspect]
     Active Substance: CISPLATIN
     Indication: PRODUCT USED FOR UNKNOWN INDICATION
     Dosage: 60 MG, CYCLICAL
     Route: 042
     Dates: start: 20150408
  5. IRBESARTAN. [Concomitant]
     Active Substance: IRBESARTAN

REACTIONS (3)
  - Thrombocytopenia [None]
  - Blood magnesium decreased [None]
  - Electrolyte imbalance [None]

NARRATIVE: CASE EVENT DATE: 20150427
